FAERS Safety Report 13697725 (Version 2)
Quarter: 2017Q4

REPORT INFORMATION
  Report Type: Spontaneous
  Country: FR (occurrence: FR)
  Receive Date: 20170628
  Receipt Date: 20171121
  Transmission Date: 20180320
  Serious: Yes (Death, Life-Threatening)
  Sender: FDA-Public Use
  Company Number: FR-SA-2017SA114747

PATIENT
  Age: 73 Year
  Sex: Female

DRUGS (25)
  1. RIFAMPICIN [Suspect]
     Active Substance: RIFAMPIN
     Route: 042
     Dates: start: 20170426, end: 20170503
  2. PIPERACILLIN [Suspect]
     Active Substance: PIPERACILLIN
     Route: 042
     Dates: start: 20170424, end: 20170427
  3. TAZOBACTAM [Suspect]
     Active Substance: TAZOBACTAM
     Dosage: ROUTE- IV (INFUSION)
     Dates: start: 20170424, end: 20170427
  4. LYRICA [Concomitant]
     Active Substance: PREGABALIN
     Dosage: 50 MG
  5. ESOMEPRAZOLE [Concomitant]
     Active Substance: ESOMEPRAZOLE
     Route: 042
     Dates: start: 20170425, end: 20170425
  6. FRAXIPARINE [Concomitant]
     Active Substance: NADROPARIN CALCIUM
  7. LANTUS [Concomitant]
     Active Substance: INSULIN GLARGINE
  8. CEFOTAXIME BASE [Concomitant]
     Active Substance: CEFOTAXIME SODIUM
     Route: 042
     Dates: start: 20170420, end: 20170424
  9. LERCAN [Concomitant]
     Active Substance: LERCANIDIPINE
     Dosage: 10 MG
  10. CETIRIZINE [Concomitant]
     Active Substance: CETIRIZINE HYDROCHLORIDE
     Dosage: 10 MG
  11. CEFOTAXIME BASE [Concomitant]
     Active Substance: CEFOTAXIME SODIUM
     Route: 042
     Dates: start: 20170402, end: 20170406
  12. VICTOZA [Concomitant]
     Active Substance: LIRAGLUTIDE
     Route: 065
  13. CLAFORAN [Suspect]
     Active Substance: CEFOTAXIME SODIUM
     Dosage: ROUTE- IV (INFUSION)
     Dates: start: 20170421, end: 20170424
  14. VANCOMYCIN [Suspect]
     Active Substance: VANCOMYCIN
     Route: 042
     Dates: start: 20170402, end: 20170504
  15. LEVOTHYROX [Concomitant]
     Active Substance: LEVOTHYROXINE
     Dosage: 50 MCG
  16. IXPRIM [Concomitant]
     Active Substance: ACETAMINOPHEN\TRAMADOL HYDROCHLORIDE
     Dosage: 37.5/325 MG
  17. LOVENOX [Suspect]
     Active Substance: ENOXAPARIN SODIUM
     Route: 058
     Dates: start: 20170420, end: 20170519
  18. NOVORAPID [Concomitant]
     Active Substance: INSULIN ASPART
  19. PARACETAMOL [Concomitant]
     Active Substance: ACETAMINOPHEN
     Route: 065
     Dates: start: 20170329, end: 20170507
  20. SIMVASTATIN. [Concomitant]
     Active Substance: SIMVASTATIN
     Dosage: 10 MG
  21. COTAREG [Concomitant]
     Active Substance: HYDROCHLOROTHIAZIDE\VALSARTAN
     Dosage: 80/12.5 MG
  22. FUROSEMIDE. [Concomitant]
     Active Substance: FUROSEMIDE
     Dosage: 40 MG
     Route: 042
     Dates: start: 20170420, end: 20170425
  23. SKENAN [Concomitant]
     Active Substance: MORPHINE SULFATE
  24. ACTISKENAN [Concomitant]
     Active Substance: MORPHINE SULFATE
  25. CORDARONE [Concomitant]
     Active Substance: AMIODARONE HYDROCHLORIDE
     Route: 048
     Dates: start: 20170501, end: 20170512

REACTIONS (1)
  - Drug reaction with eosinophilia and systemic symptoms [Fatal]

NARRATIVE: CASE EVENT DATE: 20170502
